FAERS Safety Report 11109468 (Version 1)
Quarter: 2015Q2

REPORT INFORMATION
  Report Type: Spontaneous
  Country: CA (occurrence: CA)
  Receive Date: 20150513
  Receipt Date: 20150513
  Transmission Date: 20150821
  Serious: Yes (Hospitalization)
  Sender: FDA-Public Use
  Company Number: CA-TEVA-561762ACC

PATIENT
  Age: 71 Year
  Sex: Male
  Weight: 70 kg

DRUGS (8)
  1. RIVA-METFORMIN [Concomitant]
     Dosage: UNKNOWN FORM STRENGTH
     Route: 065
  2. LOPRESOR SR [Concomitant]
     Dosage: UNKNOWN FORM STRENGTH
     Route: 065
  3. APO-ISMN [Concomitant]
     Dosage: UNKNOWN FORM STRENGTH
     Route: 065
  4. CRESTOR [Concomitant]
     Active Substance: ROSUVASTATIN CALCIUM
     Dosage: UNKNOWN FORM STRENGTH
     Route: 065
  5. PANTOPRAZOLE [Suspect]
     Active Substance: PANTOPRAZOLE SODIUM
     Indication: DYSPNOEA
     Dosage: 40 MILLIGRAM DAILY;
     Route: 048
  6. RAMIPRIL. [Concomitant]
     Active Substance: RAMIPRIL
     Dosage: UNKNOWN FORM STRENGTH
     Route: 065
  7. ASAPHEN EC [Concomitant]
     Dosage: UNKNOWN FORM STRENGTH
     Route: 065
  8. ONGLYZA FILM-COATED [Concomitant]
     Dosage: UNKNOWN FORM STRENGTH
     Route: 065

REACTIONS (5)
  - Nausea [Recovered/Resolved]
  - Blood magnesium decreased [Recovered/Resolved]
  - Vomiting [Recovered/Resolved]
  - Ventricular tachycardia [Recovered/Resolved]
  - Syncope [Recovered/Resolved]
